FAERS Safety Report 4514273-8 (Version None)
Quarter: 2004Q4

REPORT INFORMATION
  Report Type: 
  Country: None (occurrence: None)
  Receive Date: 20041124
  Receipt Date: 20041109
  Transmission Date: 20050328
  Serious: Yes (Death, Other)
  Sender: FDA-Public Use
  Company Number: GBS041115902

PATIENT
  Sex: Male

DRUGS (9)
  1. OLANZAPINE [Suspect]
     Dosage: 10 MG/2 DAY
  2. TRAZODONE HCL [Concomitant]
  3. TENORMIN [Concomitant]
  4. LIPOSTAT (PRAVASTATIN SODIUM) [Concomitant]
  5. RAMIPRIL [Concomitant]
  6. ASPIRIN [Concomitant]
  7. DIGOXIN [Concomitant]
  8. ATROVENT [Concomitant]
  9. WARFARIN SODIUM [Concomitant]

REACTIONS (2)
  - GASTRIC DILATATION [None]
  - SEPSIS [None]
